FAERS Safety Report 6342189-3 (Version None)
Quarter: 2009Q3

REPORT INFORMATION
  Report Type: 
  Country: None (occurrence: None)
  Receive Date: 20090903
  Receipt Date: 20090903
  Transmission Date: 20100115
  Serious: No
  Sender: FDA-Public Use
  Company Number: None

PATIENT
  Age: 36 Year
  Sex: Male
  Weight: 147.419 kg

DRUGS (2)
  1. ZICAM ZICAM COLD REMEDY MATRIXX NASAL GEL [Suspect]
     Indication: NASAL CONGESTION
     Dosage: ONE NASAL SPRAY DAILY NASAL
     Route: 045
     Dates: start: 20080110, end: 20080317
  2. STEROIDS [Concomitant]

REACTIONS (2)
  - ANOSMIA [None]
  - PAROSMIA [None]
